FAERS Safety Report 10504885 (Version 1)
Quarter: 2014Q3

REPORT INFORMATION
  Report Type: Spontaneous
  Country: US (occurrence: None)
  Receive Date: 20140915
  Receipt Date: 20140915
  Transmission Date: 20150326
  Serious: Yes (Other)
  Sender: FDA-Public Use
  Company Number: JPI-P-034344

PATIENT
  Age: 67 Year
  Sex: Male

DRUGS (7)
  1. LISINOPRIL. [Concomitant]
     Active Substance: LISINOPRIL
  2. XYREM [Suspect]
     Active Substance: SODIUM OXYBATE
     Indication: SOMNOLENCE
     Route: 048
     Dates: start: 20130716, end: 20130725
  3. ASPIRIN (ACETYL SALICYCLIC ACID) [Concomitant]
  4. FISH OIL [Concomitant]
     Active Substance: FISH OIL
  5. XYREM [Suspect]
     Active Substance: SODIUM OXYBATE
     Indication: NARCOLEPSY
     Route: 048
     Dates: start: 20130716, end: 20130725
  6. RITALIN (METHYLPHENIDATE HYDROCHLORIDE) [Concomitant]
     Active Substance: METHYLPHENIDATE HYDROCHLORIDE
  7. MULTIVITAMIN (ASCORBIC ACID) [Concomitant]

REACTIONS (4)
  - Enuresis [None]
  - Drug abuse [None]
  - Intentional product misuse [None]
  - Fall [None]

NARRATIVE: CASE EVENT DATE: 201307
